FAERS Safety Report 5369939-7 (Version None)
Quarter: 2007Q2

REPORT INFORMATION
  Report Type: 
  Country: None (occurrence: None)
  Receive Date: 20070621
  Receipt Date: 20070608
  Transmission Date: 20071010
  Serious: Yes (Hospitalization)
  Sender: FDA-Public Use
  Company Number: 2007-01673

PATIENT
  Age: 64 Year
  Sex: Female
  Weight: 40 kg

DRUGS (13)
  1. VELCADE [Suspect]
     Indication: MULTIPLE MYELOMA
     Dosage: 1.60 MG, INTRAVENOUS
     Route: 042
     Dates: start: 20070516, end: 20070525
  2. THALIDOMIDE [Suspect]
     Indication: MULTIPLE MYELOMA
     Dosage: 50.00 MG, ORAL
     Route: 048
     Dates: start: 20070516, end: 20070525
  3. DEXAMETHASONE [Suspect]
     Indication: MULTIPLE MYELOMA
     Dosage: 40.00 MG, ORAL
     Route: 048
     Dates: start: 20070516
  4. OXYCONTIN [Concomitant]
  5. CALCIUM CARBONATE (CALCIUM CARBONATE) [Concomitant]
  6. MACPERON [Concomitant]
  7. FAMOTIDINE [Concomitant]
  8. ASTRIX (ACETYLSALICYLIC ACID) [Concomitant]
  9. UPRIN [Concomitant]
  10. PHAZYME (PEPSIN, PANCREATIN, SIMETICONE, DIASTASE) [Concomitant]
  11. ONDANSETRON HCL [Concomitant]
  12. DUPHALAC [Concomitant]
  13. DEXTROSE W/POTASSIUM CHLORIDE AND NACL (GLUCOSE, SODIUM CHLORIDE, POTA [Concomitant]

REACTIONS (2)
  - BRONCHIOLITIS [None]
  - LUNG NEOPLASM [None]
